FAERS Safety Report 7746122-9 (Version None)
Quarter: 2011Q3

REPORT INFORMATION
  Report Type: 
  Country: None (occurrence: None)
  Receive Date: 20110907
  Receipt Date: 20110826
  Transmission Date: 20111222
  Serious: Yes (Other)
  Sender: FDA-Public Use
  Company Number: 2010JP004944

PATIENT
  Age: 43 Year
  Sex: Male
  Weight: 59.2 kg

DRUGS (20)
  1. PREDONINE (PREDNISOLONE) PER ORAL NOS [Suspect]
     Indication: LUPUS NEPHRITIS
     Dosage: 17.5 MG, ORAL 15 MG, ORAL 14 MG, ORAL
     Route: 048
     Dates: start: 20100521
  2. PREDONINE (PREDNISOLONE) PER ORAL NOS [Suspect]
     Indication: LUPUS NEPHRITIS
     Dosage: 17.5 MG, ORAL 15 MG, ORAL 14 MG, ORAL
     Route: 048
     Dates: end: 20090106
  3. PREDONINE (PREDNISOLONE) PER ORAL NOS [Suspect]
     Indication: LUPUS NEPHRITIS
     Dosage: 17.5 MG, ORAL 15 MG, ORAL 14 MG, ORAL
     Route: 048
     Dates: start: 20090107, end: 20100520
  4. AMARYL [Concomitant]
  5. CHOLEBINE (COLESTILAN) [Concomitant]
  6. P-MDPA [Concomitant]
  7. NATEGLINIDE [Concomitant]
  8. NITROPEN (GLYCERYL TRINITRATE) [Concomitant]
  9. ZETIA (EZATIMIBE) [Concomitant]
  10. RABEPRAZOLE SODIUM [Concomitant]
  11. GLUFAST (NITIGLINIDE CALCIUM) [Concomitant]
  12. LENDROMIN (BROTIZOLAM) [Concomitant]
  13. FAMOTIDINE [Concomitant]
  14. KETOPROFEN [Concomitant]
  15. GLUCOBAY [Concomitant]
  16. BUFFERIN [Concomitant]
  17. RISPERDAL [Concomitant]
  18. TACROLIMUS [Suspect]
     Indication: LUPUS NEPHRITIS
     Dosage: 3 MG, ORAL 1.5 MG, ORAL
     Route: 048
     Dates: start: 20081029, end: 20090909
  19. TACROLIMUS [Suspect]
     Indication: LUPUS NEPHRITIS
     Dosage: 3 MG, ORAL 1.5 MG, ORAL
     Route: 048
     Dates: start: 20080820, end: 20081028
  20. PRAVASTATIN [Concomitant]

REACTIONS (9)
  - SPEECH DISORDER [None]
  - HALLUCINATION [None]
  - INFLUENZA [None]
  - UPPER RESPIRATORY TRACT INFECTION [None]
  - RESTLESSNESS [None]
  - PSYCHOTIC DISORDER [None]
  - DELUSION [None]
  - DIABETES MELLITUS [None]
  - NASOPHARYNGITIS [None]
